FAERS Safety Report 21565587 (Version 2)
Quarter: 2022Q4

REPORT INFORMATION
  Report Type: Report from Study
  Country: KR (occurrence: KR)
  Receive Date: 20221108
  Receipt Date: 20221123
  Transmission Date: 20230113
  Serious: Yes (Hospitalization, Other)
  Sender: FDA-Public Use
  Company Number: KR-GLAXOSMITHKLINE-KR2022GSK161845

PATIENT

DRUGS (6)
  1. FLUTICASONE FUROATE\UMECLIDINIUM BROMIDE\VILANTEROL TRIFENATATE [Suspect]
     Active Substance: FLUTICASONE FUROATE\UMECLIDINIUM BROMIDE\VILANTEROL TRIFENATATE
     Indication: Chronic obstructive pulmonary disease
     Dosage: UNK, QD
     Route: 055
     Dates: start: 20211221
  2. DOXOFYLLINE [Concomitant]
     Active Substance: DOXOFYLLINE
     Indication: Chronic obstructive pulmonary disease
     Dosage: 400 MG, QD
     Route: 048
     Dates: start: 20201222
  3. ONEFLU [Concomitant]
     Indication: Stomatitis
     Dosage: 100 MG, QD
     Route: 048
     Dates: start: 20211221
  4. PROMAC (JAPAN) [Concomitant]
     Indication: Pain prophylaxis
     Dosage: 75 MG, BID
     Route: 048
     Dates: start: 20201222
  5. TWYNSTA [Concomitant]
     Active Substance: AMLODIPINE BESYLATE\TELMISARTAN
     Indication: Hypertension
     Dosage: 40/5 MG
     Route: 048
     Dates: start: 20201027
  6. ERDOSTEINE [Concomitant]
     Active Substance: ERDOSTEINE
     Indication: Productive cough
     Dosage: 300 MG, BID
     Route: 048
     Dates: start: 20180424

REACTIONS (1)
  - Cholangiocarcinoma [Not Recovered/Not Resolved]

NARRATIVE: CASE EVENT DATE: 20221019
